FAERS Safety Report 7124084-5 (Version None)
Quarter: 2010Q4

REPORT INFORMATION
  Report Type: 
  Country: None (occurrence: None)
  Receive Date: 20101126
  Receipt Date: 20101116
  Transmission Date: 20110411
  Serious: Yes (Other)
  Sender: FDA-Public Use
  Company Number: ES-ELI_LILLY_AND_COMPANY-ES201011004335

PATIENT
  Sex: Female
  Weight: 57 kg

DRUGS (6)
  1. FORTEO [Suspect]
     Indication: OSTEOPOROSIS
     Dosage: 20 UG, DAILY (1/D)
     Route: 058
     Dates: start: 20081105, end: 20101105
  2. HEMOVAS [Concomitant]
     Indication: CARDIOVASCULAR INSUFFICIENCY
     Dosage: 600 MG, DAILY (1/D)
     Route: 048
  3. HIDROSALURETIL [Concomitant]
     Indication: HYPERTENSION
     Dosage: 50 MG, DAILY (1/D)
     Route: 048
  4. OMEPRAZOLE [Concomitant]
     Indication: GASTRIC DISORDER
     Dosage: 20 MG, DAILY (1/D)
     Route: 048
  5. AUXINA A MASIVA [Concomitant]
     Indication: VITAMIN A
     Dosage: 50000 IU, DAILY (1/D)
     Route: 048
  6. CIPRALEX [Concomitant]
     Indication: ANXIETY
     Dosage: 10 MG, DAILY (1/D)
     Route: 048

REACTIONS (1)
  - DEVICE DISLOCATION [None]
